FAERS Safety Report 14024756 (Version 3)
Quarter: 2019Q4

REPORT INFORMATION
  Report Type: Report from Study
  Country: US (occurrence: US)
  Receive Date: 20170928
  Receipt Date: 20191227
  Transmission Date: 20200122
  Serious: No
  Sender: FDA-Public Use
  Company Number: US-SA-2017SA041201

PATIENT
  Age: 56 Year
  Sex: Female

DRUGS (7)
  1. GABAPENTIN. [Concomitant]
     Active Substance: GABAPENTIN
  2. BIOTIN [Concomitant]
     Active Substance: BIOTIN
  3. TERIFLUNOMIDE. [Suspect]
     Active Substance: TERIFLUNOMIDE
     Dosage: 14 MG, QD
     Route: 048
     Dates: start: 20170211
  4. CALCIUM [Concomitant]
     Active Substance: CALCIUM
  5. VITAMIN D [VITAMIN D NOS] [Concomitant]
     Active Substance: VITAMIN D NOS
  6. TERIFLUNOMIDE. [Suspect]
     Active Substance: TERIFLUNOMIDE
     Indication: MULTIPLE SCLEROSIS
     Dosage: 14 MG, QD
     Route: 048
     Dates: start: 20161025
  7. FISH OIL [Concomitant]
     Active Substance: FISH OIL

REACTIONS (10)
  - Migraine [Unknown]
  - Paraesthesia [Not Recovered/Not Resolved]
  - Fall [Unknown]
  - Neuralgia [Unknown]
  - Visual impairment [Unknown]
  - Diarrhoea [Unknown]
  - Hypoaesthesia [Unknown]
  - Eye pain [Unknown]
  - Fatigue [Unknown]
  - Headache [Not Recovered/Not Resolved]

NARRATIVE: CASE EVENT DATE: 20170221
